FAERS Safety Report 5909177-X (Version None)
Quarter: 2008Q4

REPORT INFORMATION
  Report Type: 
  Country: None (occurrence: None)
  Receive Date: 20081001
  Receipt Date: 20080927
  Transmission Date: 20090506
  Serious: Yes (Hospitalization)
  Sender: FDA-Public Use
  Company Number: 2008BI019532

PATIENT
  Age: 52 Year
  Sex: Male
  Weight: 80 kg

DRUGS (8)
  1. TYSABRI [Suspect]
     Indication: RELAPSING-REMITTING MULTIPLE SCLEROSIS
     Dosage: 300 UG; QM; IV
     Route: 042
     Dates: start: 20070522, end: 20080606
  2. CORTISONE [Concomitant]
  3. RANITIDINE [Concomitant]
  4. ISCOVER [Concomitant]
  5. MAGNESIUM SULFATE [Concomitant]
  6. IMUREK [Concomitant]
  7. AVONEX [Concomitant]
  8. SOLU-DECORTIN [Concomitant]

REACTIONS (13)
  - AGGRESSION [None]
  - BACK DISORDER [None]
  - BACK PAIN [None]
  - CEREBROVASCULAR ACCIDENT [None]
  - DEPRESSION [None]
  - GENERAL PHYSICAL HEALTH DETERIORATION [None]
  - IMMUNOGLOBULINS DECREASED [None]
  - JC VIRUS INFECTION [None]
  - MEMORY IMPAIRMENT [None]
  - MOOD ALTERED [None]
  - PERSONALITY CHANGE [None]
  - PROGRESSIVE MULTIFOCAL LEUKOENCEPHALOPATHY [None]
  - TOXOPLASMOSIS [None]
